FAERS Safety Report 24528720 (Version 1)
Quarter: 2024Q4

REPORT INFORMATION
  Report Type: Spontaneous
  Country: HR (occurrence: HR)
  Receive Date: 20241021
  Receipt Date: 20241021
  Transmission Date: 20250114
  Serious: Yes (Hospitalization, Other)
  Sender: PFIZER
  Company Number: HR-SANDOZ-SDZ2024HR084396

PATIENT
  Age: 67 Year

DRUGS (85)
  1. CYTARABINE [Suspect]
     Active Substance: CYTARABINE
     Indication: Lymphocytic leukaemia
     Dosage: UNK
     Route: 065
  2. RITUXIMAB [Suspect]
     Active Substance: RITUXIMAB
     Indication: Lymphocytic leukaemia
     Dosage: 800 MG, EVERY 8 WEEKS
     Route: 065
     Dates: start: 20211129
  3. RITUXIMAB [Suspect]
     Active Substance: RITUXIMAB
     Dosage: EVERY 8 WEEKS
     Route: 065
     Dates: start: 20220131
  4. RITUXIMAB [Suspect]
     Active Substance: RITUXIMAB
     Dosage: EVERY 8 WEEKS
     Route: 065
     Dates: start: 20220331
  5. RITUXIMAB [Suspect]
     Active Substance: RITUXIMAB
     Dosage: EVERY 8 WEEKS
     Route: 065
     Dates: start: 20220531
  6. RITUXIMAB [Suspect]
     Active Substance: RITUXIMAB
     Dosage: EVERY 8 WEEKS
     Route: 065
     Dates: start: 20220801
  7. RITUXIMAB [Suspect]
     Active Substance: RITUXIMAB
     Dosage: EVERY 8 WEEKS
     Route: 065
     Dates: start: 20221003
  8. RITUXIMAB [Suspect]
     Active Substance: RITUXIMAB
     Dosage: EVERY 8 WEEKS
     Route: 065
     Dates: start: 20221205
  9. RITUXIMAB [Suspect]
     Active Substance: RITUXIMAB
     Dosage: EVERY 8 WEEKS
     Route: 065
     Dates: start: 20230202
  10. RITUXIMAB [Suspect]
     Active Substance: RITUXIMAB
     Dosage: EVERY 8 WEEKS
     Route: 065
     Dates: start: 20230403
  11. RITUXIMAB [Suspect]
     Active Substance: RITUXIMAB
     Dosage: EVERY 8 WEEKS
     Route: 065
     Dates: start: 20230726
  12. RITUXIMAB [Suspect]
     Active Substance: RITUXIMAB
     Dosage: EVERY 8 WEEKS
     Route: 065
     Dates: start: 20230927
  13. RITUXIMAB [Suspect]
     Active Substance: RITUXIMAB
     Dosage: EVERY 8 WEEKS  BEGINNING 11/23 TH/FLEXID 7 DAYS, FRI
     Route: 065
     Dates: start: 20231127
  14. RITUXIMAB [Suspect]
     Active Substance: RITUXIMAB
     Dosage: EVERY 8 WEEKS  POSTPONEMENT 2 TJ., TH/KLAVOCIN, SUMAMED
     Route: 065
     Dates: start: 20240213
  15. RITUXIMAB [Suspect]
     Active Substance: RITUXIMAB
     Dosage: EVERY 8 WEEKS
     Route: 065
     Dates: start: 20240416
  16. RITUXIMAB [Suspect]
     Active Substance: RITUXIMAB
     Dosage: EVERY 8 WEEKS
     Route: 065
     Dates: start: 20240618
  17. RITUXIMAB [Suspect]
     Active Substance: RITUXIMAB
     Dosage: EVERY 8 WEEKS
     Route: 065
     Dates: start: 20240820
  18. CISPLATIN [Suspect]
     Active Substance: CISPLATIN
     Indication: Lymphocytic leukaemia
     Dosage: UNK
     Route: 065
  19. RIVAROXABAN [Suspect]
     Active Substance: RIVAROXABAN
     Indication: Lymphocytic leukaemia
     Dosage: UNK
     Route: 065
  20. ADRIACIN [Suspect]
     Active Substance: DOXORUBICIN HYDROCHLORIDE
     Indication: Lymphocytic leukaemia
     Dosage: UNK
     Route: 065
     Dates: start: 20211129
  21. ADRIACIN [Suspect]
     Active Substance: DOXORUBICIN HYDROCHLORIDE
     Dosage: UNK
     Route: 065
     Dates: start: 20220131
  22. ADRIACIN [Suspect]
     Active Substance: DOXORUBICIN HYDROCHLORIDE
     Dosage: UNK
     Route: 065
     Dates: start: 20220331
  23. ADRIACIN [Suspect]
     Active Substance: DOXORUBICIN HYDROCHLORIDE
     Dosage: UNK
     Route: 065
     Dates: start: 20220531
  24. ADRIACIN [Suspect]
     Active Substance: DOXORUBICIN HYDROCHLORIDE
     Dosage: UNK
     Route: 065
     Dates: start: 20220801
  25. ADRIACIN [Suspect]
     Active Substance: DOXORUBICIN HYDROCHLORIDE
     Dosage: UNK
     Route: 065
     Dates: start: 20221003
  26. ADRIACIN [Suspect]
     Active Substance: DOXORUBICIN HYDROCHLORIDE
     Dosage: UNK
     Route: 065
     Dates: start: 20221205
  27. ADRIACIN [Suspect]
     Active Substance: DOXORUBICIN HYDROCHLORIDE
     Dosage: UNK
     Route: 065
     Dates: start: 20230202
  28. ADRIACIN [Suspect]
     Active Substance: DOXORUBICIN HYDROCHLORIDE
     Dosage: UNK
     Route: 065
     Dates: start: 20230403
  29. ADRIACIN [Suspect]
     Active Substance: DOXORUBICIN HYDROCHLORIDE
     Dosage: UNK
     Route: 065
     Dates: start: 20230726
  30. ADRIACIN [Suspect]
     Active Substance: DOXORUBICIN HYDROCHLORIDE
     Dosage: UNK
     Route: 065
     Dates: start: 20230727
  31. ADRIACIN [Suspect]
     Active Substance: DOXORUBICIN HYDROCHLORIDE
     Dosage: UNK
     Route: 065
     Dates: start: 20231127
  32. ADRIACIN [Suspect]
     Active Substance: DOXORUBICIN HYDROCHLORIDE
     Dosage: UNK
     Route: 065
     Dates: start: 20240213
  33. ADRIACIN [Suspect]
     Active Substance: DOXORUBICIN HYDROCHLORIDE
     Dosage: UNK
     Route: 065
     Dates: start: 20240416
  34. ADRIACIN [Suspect]
     Active Substance: DOXORUBICIN HYDROCHLORIDE
     Dosage: UNK
     Route: 065
     Dates: start: 20240618
  35. ADRIACIN [Suspect]
     Active Substance: DOXORUBICIN HYDROCHLORIDE
     Dosage: UNK
     Route: 065
     Dates: start: 20240820
  36. DECADRON (DEXAMETHASONE SODIUM PHOSPHATE) [Suspect]
     Active Substance: DEXAMETHASONE SODIUM PHOSPHATE
     Indication: Lymphocytic leukaemia
     Dosage: UNK
     Route: 065
  37. CYCLOPHOSPHAMIDE [Suspect]
     Active Substance: CYCLOPHOSPHAMIDE
     Indication: Lymphocytic leukaemia
     Dosage: UNK
     Route: 065
     Dates: start: 20211129
  38. CYCLOPHOSPHAMIDE [Suspect]
     Active Substance: CYCLOPHOSPHAMIDE
     Dosage: UNK
     Route: 065
     Dates: start: 20220131
  39. CYCLOPHOSPHAMIDE [Suspect]
     Active Substance: CYCLOPHOSPHAMIDE
     Dosage: UNK
     Route: 065
     Dates: start: 20220331
  40. CYCLOPHOSPHAMIDE [Suspect]
     Active Substance: CYCLOPHOSPHAMIDE
     Dosage: UNK
     Route: 065
     Dates: start: 20220531
  41. CYCLOPHOSPHAMIDE [Suspect]
     Active Substance: CYCLOPHOSPHAMIDE
     Dosage: UNK
     Route: 065
     Dates: start: 20220801
  42. CYCLOPHOSPHAMIDE [Suspect]
     Active Substance: CYCLOPHOSPHAMIDE
     Dosage: UNK
     Route: 065
     Dates: start: 20221003
  43. CYCLOPHOSPHAMIDE [Suspect]
     Active Substance: CYCLOPHOSPHAMIDE
     Dosage: UNK
     Route: 065
     Dates: start: 20221205
  44. CYCLOPHOSPHAMIDE [Suspect]
     Active Substance: CYCLOPHOSPHAMIDE
     Dosage: UNK
     Route: 065
     Dates: start: 20230202
  45. CYCLOPHOSPHAMIDE [Suspect]
     Active Substance: CYCLOPHOSPHAMIDE
     Dosage: UNK
     Route: 065
     Dates: start: 20230403
  46. CYCLOPHOSPHAMIDE [Suspect]
     Active Substance: CYCLOPHOSPHAMIDE
     Dosage: UNK
     Route: 065
     Dates: start: 20230726
  47. CYCLOPHOSPHAMIDE [Suspect]
     Active Substance: CYCLOPHOSPHAMIDE
     Dosage: UNK
     Route: 065
     Dates: start: 20230927
  48. CYCLOPHOSPHAMIDE [Suspect]
     Active Substance: CYCLOPHOSPHAMIDE
     Dosage: UNK
     Route: 065
     Dates: start: 20231127
  49. CYCLOPHOSPHAMIDE [Suspect]
     Active Substance: CYCLOPHOSPHAMIDE
     Dosage: UNK
     Route: 065
     Dates: start: 20230213
  50. CYCLOPHOSPHAMIDE [Suspect]
     Active Substance: CYCLOPHOSPHAMIDE
     Dosage: UNK
     Route: 065
     Dates: start: 20230416
  51. CYCLOPHOSPHAMIDE [Suspect]
     Active Substance: CYCLOPHOSPHAMIDE
     Dosage: UNK
     Route: 065
     Dates: start: 20240618
  52. CYCLOPHOSPHAMIDE [Suspect]
     Active Substance: CYCLOPHOSPHAMIDE
     Dosage: UNK
     Route: 065
     Dates: start: 20240820
  53. VINCRISTINE SULFATE [Suspect]
     Active Substance: VINCRISTINE SULFATE
     Indication: Lymphocytic leukaemia
     Dosage: UNK
     Route: 065
     Dates: start: 20211129
  54. VINCRISTINE SULFATE [Suspect]
     Active Substance: VINCRISTINE SULFATE
     Dosage: UNK
     Route: 065
     Dates: start: 20220131
  55. VINCRISTINE SULFATE [Suspect]
     Active Substance: VINCRISTINE SULFATE
     Dosage: UNK
     Route: 065
     Dates: start: 20220331
  56. VINCRISTINE SULFATE [Suspect]
     Active Substance: VINCRISTINE SULFATE
     Dosage: UNK
     Route: 065
     Dates: start: 20220531
  57. VINCRISTINE SULFATE [Suspect]
     Active Substance: VINCRISTINE SULFATE
     Dosage: UNK
     Route: 065
     Dates: start: 20220801
  58. VINCRISTINE SULFATE [Suspect]
     Active Substance: VINCRISTINE SULFATE
     Dosage: UNK
     Route: 065
     Dates: start: 20220801
  59. VINCRISTINE SULFATE [Suspect]
     Active Substance: VINCRISTINE SULFATE
     Dosage: UNK
     Route: 065
     Dates: start: 20221003
  60. VINCRISTINE SULFATE [Suspect]
     Active Substance: VINCRISTINE SULFATE
     Dosage: UNK
     Route: 065
     Dates: start: 20221205
  61. VINCRISTINE SULFATE [Suspect]
     Active Substance: VINCRISTINE SULFATE
     Dosage: UNK
     Route: 065
     Dates: start: 20230202
  62. VINCRISTINE SULFATE [Suspect]
     Active Substance: VINCRISTINE SULFATE
     Dosage: UNK
     Route: 065
     Dates: start: 20230403
  63. VINCRISTINE SULFATE [Suspect]
     Active Substance: VINCRISTINE SULFATE
     Dosage: UNK
     Route: 065
     Dates: start: 20230726
  64. VINCRISTINE SULFATE [Suspect]
     Active Substance: VINCRISTINE SULFATE
     Dosage: UNK
     Route: 065
     Dates: start: 20230927
  65. VINCRISTINE SULFATE [Suspect]
     Active Substance: VINCRISTINE SULFATE
     Dosage: UNK
     Route: 065
     Dates: start: 20231127
  66. VINCRISTINE SULFATE [Suspect]
     Active Substance: VINCRISTINE SULFATE
     Dosage: UNK
     Route: 065
     Dates: start: 20240213
  67. VINCRISTINE SULFATE [Suspect]
     Active Substance: VINCRISTINE SULFATE
     Dosage: UNK
     Route: 065
     Dates: start: 20240416
  68. VINCRISTINE SULFATE [Suspect]
     Active Substance: VINCRISTINE SULFATE
     Dosage: UNK
     Route: 065
     Dates: start: 20240618
  69. VINCRISTINE SULFATE [Suspect]
     Active Substance: VINCRISTINE SULFATE
     Dosage: UNK
     Route: 065
     Dates: start: 20240820
  70. PREDNISONE [Suspect]
     Active Substance: PREDNISONE
     Indication: Lymphocytic leukaemia
     Dosage: UNK
     Route: 065
     Dates: start: 20211129
  71. PREDNISONE [Suspect]
     Active Substance: PREDNISONE
     Dosage: UNK
     Route: 065
     Dates: start: 20220131
  72. PREDNISONE [Suspect]
     Active Substance: PREDNISONE
     Dosage: UNK
     Route: 065
     Dates: start: 20220331
  73. PREDNISONE [Suspect]
     Active Substance: PREDNISONE
     Dosage: UNK
     Route: 065
     Dates: start: 20220531
  74. PREDNISONE [Suspect]
     Active Substance: PREDNISONE
     Dosage: UNK
     Route: 065
     Dates: start: 20220801
  75. PREDNISONE [Suspect]
     Active Substance: PREDNISONE
     Dosage: UNK
     Route: 065
     Dates: start: 20221003
  76. PREDNISONE [Suspect]
     Active Substance: PREDNISONE
     Dosage: UNK
     Route: 065
     Dates: start: 20221205
  77. PREDNISONE [Suspect]
     Active Substance: PREDNISONE
     Dosage: UNK
     Route: 065
     Dates: start: 20230202
  78. PREDNISONE [Suspect]
     Active Substance: PREDNISONE
     Dosage: UNK
     Route: 065
     Dates: start: 20230403
  79. PREDNISONE [Suspect]
     Active Substance: PREDNISONE
     Dosage: UNK
     Route: 065
     Dates: start: 20230726
  80. PREDNISONE [Suspect]
     Active Substance: PREDNISONE
     Dosage: UNK
     Route: 065
     Dates: start: 20230927
  81. PREDNISONE [Suspect]
     Active Substance: PREDNISONE
     Dosage: UNK
     Route: 065
     Dates: start: 20231127
  82. PREDNISONE [Suspect]
     Active Substance: PREDNISONE
     Dosage: UNK
     Route: 065
     Dates: start: 20020213
  83. PREDNISONE [Suspect]
     Active Substance: PREDNISONE
     Dosage: UNK
     Route: 065
     Dates: start: 20240416
  84. PREDNISONE [Suspect]
     Active Substance: PREDNISONE
     Dosage: UNK
     Route: 065
     Dates: start: 20240618
  85. PREDNISONE [Suspect]
     Active Substance: PREDNISONE
     Dosage: UNK
     Route: 065
     Dates: start: 20240820

REACTIONS (11)
  - Pneumonia [Unknown]
  - Ileus [Recovered/Resolved]
  - Azotaemia [Recovered/Resolved]
  - Febrile neutropenia [Recovered/Resolved]
  - Pseudomonas test positive [Unknown]
  - Respiratory symptom [Unknown]
  - Acute abdomen [Unknown]
  - Mechanical ileus [Unknown]
  - Respiratory tract infection [Unknown]
  - Atrial fibrillation [Recovered/Resolved]
  - C-reactive protein increased [Unknown]
